FAERS Safety Report 8476651-4 (Version None)
Quarter: 2012Q2

REPORT INFORMATION
  Report Type: 
  Country: None (occurrence: None)
  Receive Date: 20120628
  Receipt Date: 20120622
  Transmission Date: 20120825
  Serious: Yes (Hospitalization)
  Sender: FDA-Public Use
  Company Number: JP-FRI-1000036632

PATIENT
  Sex: Female

DRUGS (6)
  1. MEMANTINE HCL [Suspect]
     Dosage: 10 MG
     Route: 048
     Dates: start: 20110817, end: 20110823
  2. AMLODIPINE [Concomitant]
     Indication: HYPERTENSION
     Dosage: 5 MG
     Route: 048
     Dates: end: 20110927
  3. LAXOBERON [Concomitant]
     Indication: CONSTIPATION
     Dosage: 5 MG
     Route: 048
     Dates: end: 20110927
  4. MEMANTINE HCL [Suspect]
     Dosage: 15 MG
     Route: 048
     Dates: start: 20110824, end: 20110920
  5. MEMANTINE HCL [Suspect]
     Indication: DEMENTIA ALZHEIMER'S TYPE
     Dosage: 5 MG
     Route: 048
     Dates: start: 20110810, end: 20110816
  6. MUCOSOLVAN [Concomitant]
     Indication: SPUTUM INCREASED
     Dosage: 45 MG
     Route: 048
     Dates: start: 20110827, end: 20110927

REACTIONS (1)
  - SPUTUM INCREASED [None]
